FAERS Safety Report 7293075-6 (Version None)
Quarter: 2011Q1

REPORT INFORMATION
  Report Type: 
  Country: None (occurrence: None)
  Receive Date: 20110215
  Receipt Date: 20110201
  Transmission Date: 20110831
  Serious: No
  Sender: FDA-Public Use
  Company Number: US-BAYER-2011-011660

PATIENT
  Age: 2 Year

DRUGS (1)
  1. ALEVE (CAPLET) [Suspect]
     Indication: ACCIDENTAL DRUG INTAKE BY CHILD
     Dosage: UNK, BOTTLE COUNT 100CT
     Route: 048
     Dates: start: 20110201, end: 20110201

REACTIONS (1)
  - NO ADVERSE EVENT [None]
